FAERS Safety Report 10952324 (Version 2)
Quarter: 2015Q1

REPORT INFORMATION
  Report Type: Spontaneous
  Country: US (occurrence: US)
  Receive Date: 20150325
  Receipt Date: 20150325
  Transmission Date: 20150721
  Serious: No
  Sender: FDA-Public Use
  Company Number: US-ELI_LILLY_AND_COMPANY-US201503000224

PATIENT
  Age: 67 Year
  Sex: Male

DRUGS (3)
  1. CIALIS [Suspect]
     Active Substance: TADALAFIL
     Indication: ERECTILE DYSFUNCTION
     Dosage: 5 MG, QD
     Route: 065
     Dates: start: 20150106, end: 20150221
  2. ZOLPIDEM [Concomitant]
     Active Substance: ZOLPIDEM\ZOLPIDEM TARTRATE
     Indication: INSOMNIA
     Dosage: 10 MG, UNKNOWN
     Route: 065
  3. CIALIS [Suspect]
     Active Substance: TADALAFIL
     Indication: BENIGN PROSTATIC HYPERPLASIA

REACTIONS (1)
  - Ageusia [Recovered/Resolved]

NARRATIVE: CASE EVENT DATE: 20150203
